FAERS Safety Report 6119717-6 (Version None)
Quarter: 2009Q1

REPORT INFORMATION
  Report Type: 
  Country: None (occurrence: None)
  Receive Date: 20090316
  Receipt Date: 20090312
  Transmission Date: 20090719
  Serious: Yes (Hospitalization)
  Sender: FDA-Public Use
  Company Number: FR-BRISTOL-MYERS SQUIBB COMPANY-14468417

PATIENT
  Age: 43 Year
  Sex: Female

DRUGS (4)
  1. ABILIFY [Suspect]
     Indication: BIPOLAR DISORDER
     Route: 048
  2. DEPAKOTE [Suspect]
     Indication: BIPOLAR DISORDER
     Dosage: 1 DOSAGE FORM  = 1000 (UNIT NOT SPECIFIED)
     Route: 048
  3. SEROPLEX [Concomitant]
     Indication: BIPOLAR DISORDER
     Dosage: 1 DOSAGE FORM = 20 (UNIT NOT SPECIFIED)
     Route: 048
  4. IMOVANE [Concomitant]
     Indication: BIPOLAR DISORDER
     Route: 048

REACTIONS (1)
  - SYSTEMIC LUPUS ERYTHEMATOSUS [None]
